FAERS Safety Report 8244956-8 (Version None)
Quarter: 2012Q1

REPORT INFORMATION
  Report Type: 
  Country: None (occurrence: None)
  Receive Date: 20120329
  Receipt Date: 20111208
  Transmission Date: 20120608
  Serious: No
  Sender: FDA-Public Use
  Company Number: US-MYLANLABS-2011S1021417

PATIENT
  Age: 44 Year
  Sex: Male

DRUGS (9)
  1. NEURONTIN [Concomitant]
  2. FISH OIL [Concomitant]
  3. FENTANYL-100 [Suspect]
     Indication: BACK PAIN
     Dosage: Q 48 HOURS
     Route: 062
     Dates: start: 20110905, end: 20111101
  4. MIRALAX /00754501/ [Concomitant]
  5. PRINIVIL [Concomitant]
  6. ZANAFLEX [Concomitant]
  7. MULTI-VITAMIN [Concomitant]
  8. OXYCODONE HCL [Concomitant]
  9. PRAVACHOL [Concomitant]

REACTIONS (7)
  - DRUG EFFECT INCREASED [None]
  - RESTLESSNESS [None]
  - DRUG WITHDRAWAL SYNDROME [None]
  - HOT FLUSH [None]
  - HYPERHIDROSIS [None]
  - TREMOR [None]
  - WRONG TECHNIQUE IN DRUG USAGE PROCESS [None]
